FAERS Safety Report 11172387 (Version 1)
Quarter: 2015Q2

REPORT INFORMATION
  Report Type: Spontaneous
  Country: US (occurrence: US)
  Receive Date: 20150608
  Receipt Date: 20150608
  Transmission Date: 20150821
  Serious: Yes (Hospitalization, Other)
  Sender: FDA-Public Use
  Company Number: US-ABBVIE-13P-163-1136584-00

PATIENT
  Age: 32 Year
  Sex: Male
  Weight: 83.99 kg

DRUGS (6)
  1. WELLBUTRIN [Concomitant]
     Active Substance: BUPROPION HYDROCHLORIDE
     Indication: DEPRESSION
  2. ANDROGEL [Suspect]
     Active Substance: TESTOSTERONE
     Dosage: PER LEGAL DOCUMENTS
     Route: 065
  3. ANDROGEL [Suspect]
     Active Substance: TESTOSTERONE
     Indication: BLOOD TESTOSTERONE DECREASED
     Dosage: PER NP
     Route: 061
     Dates: start: 2012
  4. ANDROGEL [Suspect]
     Active Substance: TESTOSTERONE
     Indication: BLOOD TESTOSTERONE DECREASED
     Dosage: PER NP
     Route: 061
     Dates: start: 2012, end: 2012
  5. SUBOXONE [Concomitant]
     Active Substance: BUPRENORPHINE HYDROCHLORIDE\NALOXONE HYDROCHLORIDE
     Indication: DRUG DEPENDENCE
  6. ANDROGEL [Suspect]
     Active Substance: TESTOSTERONE
     Dosage: PER LEGAL DOCUMENTS
     Route: 065

REACTIONS (7)
  - Brain oedema [Recovered/Resolved]
  - Mobility decreased [Recovering/Resolving]
  - Lymphadenopathy [Recovered/Resolved]
  - Cerebrovascular accident [Unknown]
  - Blood testosterone decreased [Not Recovered/Not Resolved]
  - Encephalitis [Recovered/Resolved]
  - Pharyngitis [Recovered/Resolved]

NARRATIVE: CASE EVENT DATE: 2013
